FAERS Safety Report 21749274 (Version 1)
Quarter: 2022Q4

REPORT INFORMATION
  Report Type: Spontaneous
  Country: US (occurrence: None)
  Receive Date: 20221217
  Receipt Date: 20221217
  Transmission Date: 20230113
  Serious: Yes (Hospitalization)
  Sender: FDA-Public Use
  Company Number: None

PATIENT
  Age: 38 Year
  Sex: Male
  Weight: 77 kg

DRUGS (8)
  1. CYCLOPHOSPHAMIDE [Suspect]
     Active Substance: CYCLOPHOSPHAMIDE
     Dates: end: 20221116
  2. CYTARABINE [Suspect]
     Active Substance: CYTARABINE
     Dates: end: 20221126
  3. DEXAMETHASONE [Suspect]
     Active Substance: DEXAMETHASONE
     Dates: end: 20221106
  4. DOXORUBICIN HYDROCHLORIDE [Suspect]
     Active Substance: DOXORUBICIN HYDROCHLORIDE
     Dates: end: 20221031
  5. METHOTREXATE [Suspect]
     Active Substance: METHOTREXATE
     Dates: end: 20221123
  6. ONCASPAR [Suspect]
     Active Substance: PEGASPARGASE
     Dates: end: 20221204
  7. THIOGUANINE ANHYDROUS [Suspect]
     Active Substance: THIOGUANINE ANHYDROUS
     Dates: end: 20221204
  8. VINCRISTINE SULFATE [Suspect]
     Active Substance: VINCRISTINE SULFATE
     Dates: end: 20221210

REACTIONS (3)
  - Febrile neutropenia [None]
  - Abdominal pain [None]
  - Liver function test increased [None]

NARRATIVE: CASE EVENT DATE: 20221214
